FAERS Safety Report 7670282-1 (Version None)
Quarter: 2011Q3

REPORT INFORMATION
  Report Type: 
  Country: None (occurrence: None)
  Receive Date: 20110809
  Receipt Date: 20110801
  Transmission Date: 20111222
  Serious: Yes (Hospitalization, Other)
  Sender: FDA-Public Use
  Company Number: US-BIOGENIDEC-2011BI000274

PATIENT
  Age: 56 Year
  Sex: Female

DRUGS (5)
  1. TYSABRI [Suspect]
     Indication: MULTIPLE SCLEROSIS
     Route: 042
     Dates: start: 20100713, end: 20100713
  2. TYSABRI [Suspect]
     Route: 042
     Dates: start: 20081013, end: 20091223
  3. AVONEX [Concomitant]
     Indication: MULTIPLE SCLEROSIS
     Route: 030
     Dates: start: 20020613, end: 20030601
  4. AVONEX [Concomitant]
     Route: 030
     Dates: start: 20071018
  5. AVONEX [Concomitant]
     Route: 030

REACTIONS (3)
  - CELLULITIS [None]
  - DECUBITUS ULCER [None]
  - GENERAL SYMPTOM [None]
